FAERS Safety Report 7517335-6 (Version None)
Quarter: 2011Q2

REPORT INFORMATION
  Report Type: 
  Country: None (occurrence: None)
  Receive Date: 20110601
  Receipt Date: 20110516
  Transmission Date: 20111010
  Serious: Yes (Other)
  Sender: FDA-Public Use
  Company Number: IT-PFIZER INC-2011116409

PATIENT
  Age: 23 Year
  Sex: Female
  Weight: 48 kg

DRUGS (13)
  1. FLUCONAZOLE [Suspect]
     Indication: SELF INJURIOUS BEHAVIOUR
     Dosage: 150 MG, UNK
     Dates: start: 20110516
  2. CETIRIZINE HCL [Suspect]
     Indication: SELF INJURIOUS BEHAVIOUR
     Dosage: 10 MG, UNK
     Route: 048
     Dates: start: 20110516
  3. LEXOTAN [Suspect]
     Indication: SELF INJURIOUS BEHAVIOUR
     Dosage: 0.25 %, UNK
     Dates: start: 20110516
  4. CEFIXIME [Suspect]
     Indication: SELF INJURIOUS BEHAVIOUR
     Dosage: 400 MG, UNK
     Route: 048
     Dates: start: 20110516
  5. IBUPROFEN [Suspect]
     Indication: SELF INJURIOUS BEHAVIOUR
     Dosage: UNK
     Route: 048
     Dates: start: 20110516
  6. NICOTINE [Suspect]
     Indication: SELF INJURIOUS BEHAVIOUR
     Dosage: TOBACCO
     Dates: start: 20110516
  7. VERMOX [Suspect]
     Indication: SELF INJURIOUS BEHAVIOUR
     Dosage: 500 MG, UNK
     Route: 048
     Dates: start: 20110516
  8. NAPROXEN SODIUM [Suspect]
     Indication: SELF INJURIOUS BEHAVIOUR
     Dosage: UNK
     Route: 048
     Dates: start: 20110516
  9. FERLIXIT [Suspect]
     Indication: SELF INJURIOUS BEHAVIOUR
     Dosage: UNK
     Route: 048
     Dates: start: 20110516
  10. VOLTAREN [Suspect]
     Indication: SELF INJURIOUS BEHAVIOUR
     Dosage: UNK
     Route: 048
     Dates: start: 20110516
  11. BETAMETHASONE SODIUM PHOSPHATE [Suspect]
     Indication: SELF INJURIOUS BEHAVIOUR
     Dosage: 0.5 MG, UNK
     Route: 048
     Dates: start: 20110516
  12. ACETAMINOPHEN [Suspect]
     Indication: SELF INJURIOUS BEHAVIOUR
     Dosage: UNK
     Route: 048
     Dates: start: 20110516
  13. MUSCORIL [Suspect]
     Indication: SELF INJURIOUS BEHAVIOUR
     Dosage: 4 MG, UNK
     Route: 048
     Dates: start: 20110516

REACTIONS (1)
  - SELF INJURIOUS BEHAVIOUR [None]
